FAERS Safety Report 9379264 (Version 1)
Quarter: 2013Q2

REPORT INFORMATION
  Report Type: Spontaneous
  Country: US (occurrence: None)
  Receive Date: 20130402
  Receipt Date: 20130402
  Transmission Date: 20140414
  Serious: Yes (Death, Hospitalization)
  Sender: FDA-Public Use
  Company Number: 13-F-US-00093

PATIENT
  Age: 56 Year
  Sex: Male

DRUGS (1)
  1. FOLOTYN [Suspect]
     Dates: start: 201302, end: 201302

REACTIONS (1)
  - Pyrexia [None]
